FAERS Safety Report 17395426 (Version 1)
Quarter: 2020Q1

REPORT INFORMATION
  Report Type: Report from Study
  Country: US (occurrence: US)
  Receive Date: 20200210
  Receipt Date: 20200210
  Transmission Date: 20200409
  Serious: Yes (Other)
  Sender: FDA-Public Use
  Company Number: US-MYLANLABS-2019M1117533

PATIENT
  Age: 70 Year
  Sex: Female

DRUGS (1)
  1. GLATIRAMER ACETATE INJECTION [Suspect]
     Active Substance: GLATIRAMER ACETATE
     Indication: RELAPSING-REMITTING MULTIPLE SCLEROSIS
     Dosage: 3 TIMES/WEEK
     Route: 058

REACTIONS (6)
  - Medication error [Unknown]
  - Gait disturbance [Unknown]
  - Injection site pain [Unknown]
  - Drug ineffective [Unknown]
  - Limb discomfort [Unknown]
  - Pain in extremity [Unknown]
